FAERS Safety Report 14248910 (Version 3)
Quarter: 2018Q1

REPORT INFORMATION
  Report Type: Spontaneous
  Country: FR (occurrence: FR)
  Receive Date: 20171204
  Receipt Date: 20180321
  Transmission Date: 20180508
  Serious: Yes (Other)
  Sender: FDA-Public Use
  Company Number: FR-GILEAD-2017-0307993

PATIENT
  Age: 57 Year
  Sex: Male
  Weight: 73 kg

DRUGS (10)
  1. GOLIMUMAB [Suspect]
     Active Substance: GOLIMUMAB
     Indication: ENTEROCOLITIS HAEMORRHAGIC
     Dosage: 50 MG, UNK
     Route: 065
     Dates: start: 20151008, end: 20160608
  2. PREZISTA [Concomitant]
     Active Substance: DARUNAVIR ETHANOLATE
     Indication: HIV INFECTION
     Dosage: UNK
     Route: 048
     Dates: start: 20051006, end: 20160514
  3. EPIVIR [Concomitant]
     Active Substance: LAMIVUDINE
     Indication: HIV INFECTION
     Dosage: UNK
     Route: 048
     Dates: start: 20010213, end: 20160514
  4. STRIBILD [Suspect]
     Active Substance: COBICISTAT\ELVITEGRAVIR\EMTRICITABINE\TENOFOVIR DISOPROXIL FUMARATE
     Indication: HIV INFECTION
     Dosage: UNK
     Route: 048
     Dates: start: 20160515, end: 20171004
  5. NORVIR [Concomitant]
     Active Substance: RITONAVIR
     Indication: HIV INFECTION
     Dosage: UNK
     Route: 048
     Dates: start: 20051006, end: 20160514
  6. AZATHIOPRINE. [Concomitant]
     Active Substance: AZATHIOPRINE
     Indication: ENTEROCOLITIS HAEMORRHAGIC
     Dosage: UNK
     Route: 048
     Dates: start: 20040928
  7. VIRAMUNE [Concomitant]
     Active Substance: NEVIRAPINE
     Indication: HIV INFECTION
     Dosage: UNK
     Route: 048
     Dates: start: 20010213, end: 20160515
  8. GOLIMUMAB [Suspect]
     Active Substance: GOLIMUMAB
     Dosage: 400 MG, UNK
     Route: 065
     Dates: start: 20160115, end: 20170914
  9. GOLIMUMAB [Suspect]
     Active Substance: GOLIMUMAB
     Dosage: 100 MG, UNK
     Route: 065
     Dates: start: 20160608, end: 20170914
  10. PENTASA [Concomitant]
     Active Substance: MESALAMINE
     Indication: ENTEROCOLITIS HAEMORRHAGIC
     Dosage: 2 G, QD
     Route: 048
     Dates: start: 20080715

REACTIONS (5)
  - Enterocolitis haemorrhagic [Unknown]
  - Drug interaction [Recovered/Resolved]
  - Drug ineffective [Recovered/Resolved]
  - Viral load increased [Recovered/Resolved]
  - Gene mutation identification test positive [Unknown]

NARRATIVE: CASE EVENT DATE: 20170201
